FAERS Safety Report 8962761 (Version 1)
Quarter: 2012Q4

REPORT INFORMATION
  Report Type: 
  Country: AU (occurrence: AU)
  Receive Date: 20121214
  Receipt Date: 20121214
  Transmission Date: 20130627
  Serious: Yes (Death)
  Sender: FDA-Public Use
  Company Number: AU-SANOFI-AVENTIS-2012SA090911

PATIENT
  Age: 66 Year
  Sex: Female
  Weight: 55 kg

DRUGS (5)
  1. CLEXANE [Suspect]
     Indication: DRUG USE FOR UNKNOWN INDICATION
     Route: 042
     Dates: start: 20120827, end: 20120827
  2. CLEXANE [Suspect]
     Indication: DRUG USE FOR UNKNOWN INDICATION
     Dosage: form-injection concentrated
     Route: 058
     Dates: start: 20120827, end: 20120827
  3. CLOPIDOGREL BISULFATE [Suspect]
     Indication: DRUG USE FOR UNKNOWN INDICATION
     Route: 048
     Dates: start: 20120827, end: 20120827
  4. ASPIRIN [Suspect]
     Indication: DRUG USE FOR UNKNOWN INDICATION
     Route: 048
     Dates: start: 20120827, end: 20120827
  5. TENECTEPLASE [Suspect]
     Indication: DRUG USE FOR UNKNOWN INDICATION
     Dosage: form-injection,intravenous infusion
     Route: 042
     Dates: start: 20120827, end: 20120827

REACTIONS (7)
  - Convulsion [Fatal]
  - Cardiac arrest [Fatal]
  - Respiratory arrest [Fatal]
  - Bradycardia [Fatal]
  - Loss of consciousness [Fatal]
  - Mydriasis [Fatal]
  - Cerebral haemorrhage [Fatal]
